FAERS Safety Report 21453527 (Version 6)
Quarter: 2023Q4

REPORT INFORMATION
  Report Type: Spontaneous
  Country: US (occurrence: US)
  Receive Date: 20221013
  Receipt Date: 20231025
  Transmission Date: 20240109
  Serious: No
  Sender: FDA-Public Use
  Company Number: US-PFIZER INC-PV202200081723

PATIENT
  Age: 89 Year
  Sex: Female

DRUGS (1)
  1. IBRANCE [Suspect]
     Active Substance: PALBOCICLIB
     Dosage: 100 MG, CYCLIC (1 TABLET ONCE DAILY DAY 1- DAY 14 EVERY 21 DAYS)
     Route: 048

REACTIONS (3)
  - Hypoacusis [Unknown]
  - Vocal cord atrophy [Unknown]
  - Off label use [Unknown]
